FAERS Safety Report 8822368 (Version 2)
Quarter: 2012Q4

REPORT INFORMATION
  Report Type: 
  Country: US (occurrence: US)
  Receive Date: 20121003
  Receipt Date: 20121008
  Transmission Date: 20130627
  Serious: Yes (Death, Other)
  Sender: FDA-Public Use
  Company Number: PHEH2012US019190

PATIENT
  Age: 84 Year
  Sex: Female

DRUGS (1)
  1. RECLAST [Suspect]
     Dosage: 5 mg, UNK
     Route: 042
     Dates: start: 20110915

REACTIONS (3)
  - Death [Fatal]
  - Lobar pneumonia [Unknown]
  - Pleural effusion [Unknown]
